FAERS Safety Report 6746318-9 (Version None)
Quarter: 2010Q2

REPORT INFORMATION
  Report Type: 
  Country: None (occurrence: None)
  Receive Date: 20100528
  Receipt Date: 20100516
  Transmission Date: 20101027
  Serious: Yes (Other)
  Sender: FDA-Public Use
  Company Number: US-PFIZER INC-2010059447

PATIENT
  Sex: Female
  Weight: 77 kg

DRUGS (17)
  1. CHANTIX [Suspect]
     Indication: SMOKING CESSATION THERAPY
     Dosage: 0.5 MG, 1X/DAY
     Route: 048
     Dates: start: 20100503
  2. CHANTIX [Suspect]
     Dosage: 1 MG, 2X/DAY
     Route: 048
     Dates: start: 20100501
  3. CHANTIX [Suspect]
     Dosage: UNK
  4. LEXAPRO [Concomitant]
     Dosage: UNK
  5. SYNTHROID [Concomitant]
     Dosage: 50 MCG ONCE A DAY
  6. MONTELUKAST [Concomitant]
     Dosage: 10 MG, 1X/DAY
  7. ACETYLSALICYLIC ACID [Concomitant]
     Dosage: UNK
  8. VITAMIN D [Concomitant]
     Dosage: 5000 IU
  9. ADVAIR DISKUS 100/50 [Concomitant]
     Dosage: UNK, 2X/DAY
  10. SIMVASTATIN [Concomitant]
     Indication: BLOOD CHOLESTEROL INCREASED
     Dosage: 40 MG
  11. MULTI-VITAMINS [Concomitant]
     Dosage: DAILY
  12. GABAPENTIN [Concomitant]
     Indication: NEURALGIA
     Dosage: 800 MG, 3X/DAY
  13. CALCIUM [Concomitant]
     Dosage: 1200 MG
  14. LIPOIC ACID [Concomitant]
     Dosage: UNK
  15. FISH OIL [Concomitant]
     Dosage: UNK
  16. AMBIEN [Concomitant]
     Indication: INSOMNIA
     Dosage: UNK
  17. NEURONTIN [Concomitant]
     Indication: NEURALGIA

REACTIONS (3)
  - AGITATION [None]
  - NERVOUSNESS [None]
  - WITHDRAWAL SYNDROME [None]
